FAERS Safety Report 16831891 (Version 1)
Quarter: 2019Q3

REPORT INFORMATION
  Report Type: Spontaneous
  Country: SG (occurrence: SG)
  Receive Date: 20190920
  Receipt Date: 20190920
  Transmission Date: 20191005
  Serious: Yes (Hospitalization, Other)
  Sender: FDA-Public Use
  Company Number: SG-LUPIN PHARMACEUTICALS INC.-2019-06112

PATIENT
  Age: 45 Year
  Sex: Male

DRUGS (1)
  1. TESTOSTERONE. [Suspect]
     Active Substance: TESTOSTERONE
     Indication: TRANSGENDER HORMONAL THERAPY
     Dosage: UNK (INJECTION, SUPRAPHYSIOLOGIC)
     Route: 065
     Dates: start: 2011

REACTIONS (2)
  - Retinal artery occlusion [Recovering/Resolving]
  - Polycythaemia [Recovering/Resolving]
